FAERS Safety Report 8776034 (Version 1)
Quarter: 2012Q4

REPORT INFORMATION
  Report Type: 
  Country: KE (occurrence: KE)
  Receive Date: 20120910
  Receipt Date: 20120910
  Transmission Date: 20130627
  Serious: Yes (Other)
  Sender: FDA-Public Use
  Company Number: KE-B.I. PHARMACEUTICALS,INC./RIDGEFIELD-2012-EU-04321GD

PATIENT

DRUGS (7)
  1. NEVIRAPINE [Suspect]
     Indication: PROPHYLAXIS
     Route: 063
  2. NEVIRAPINE [Suspect]
     Indication: HUMAN IMMUNODEFICIENCY VIRUS TRANSMISSION
  3. NEVIRAPINE [Suspect]
     Indication: HIV INFECTION
  4. COMBIVIR [Suspect]
     Indication: PROPHYLAXIS
     Route: 063
  5. COMBIVIR [Suspect]
     Indication: HUMAN IMMUNODEFICIENCY VIRUS TRANSMISSION
  6. AZT [Suspect]
     Indication: HIV INFECTION
  7. LAMIVUDINE [Suspect]
     Indication: HIV INFECTION

REACTIONS (4)
  - HIV infection [Unknown]
  - Viral mutation identified [Unknown]
  - Drug resistance [Unknown]
  - Exposure during breast feeding [None]
